FAERS Safety Report 9804398 (Version 1)
Quarter: 2014Q1

REPORT INFORMATION
  Report Type: Spontaneous
  Country: DE (occurrence: DE)
  Receive Date: 20140108
  Receipt Date: 20140108
  Transmission Date: 20141002
  Serious: Yes (Other)
  Sender: FDA-Public Use
  Company Number: DE-GLAXOSMITHKLINE-D0082240A

PATIENT
  Age: 46 Year
  Sex: Female
  Weight: 69 kg

DRUGS (5)
  1. BENLYSTA [Suspect]
     Indication: SYSTEMIC LUPUS ERYTHEMATOSUS
     Route: 065
     Dates: start: 2012
  2. RESOCHIN [Concomitant]
     Dosage: 250MG PER DAY
     Route: 065
     Dates: start: 201112
  3. CIPRALEX [Concomitant]
     Indication: PSYCHOTIC DISORDER
     Dosage: 25MG PER DAY
     Route: 065
  4. OLMESARTAN MEDOXOMIL [Concomitant]
     Indication: HYPERTENSION
     Dosage: 10MG PER DAY
     Route: 065
  5. MARCUMAR [Concomitant]
     Indication: PULMONARY EMBOLISM
     Route: 065

REACTIONS (1)
  - Leukopenia [Not Recovered/Not Resolved]
